FAERS Safety Report 15459675 (Version 1)
Quarter: 2018Q4

REPORT INFORMATION
  Report Type: Spontaneous
  Country: US (occurrence: US)
  Receive Date: 20181001
  Receipt Date: 20181001
  Transmission Date: 20190204
  Serious: Yes (Other)
  Sender: FDA-Public Use
  Company Number: None

PATIENT
  Age: 62 Year
  Sex: Female
  Weight: 82.44 kg

DRUGS (17)
  1. CAPECITABINE. [Suspect]
     Active Substance: CAPECITABINE
     Indication: OVARIAN CANCER
     Route: 048
     Dates: start: 20180809
  2. XANAX [Concomitant]
     Active Substance: ALPRAZOLAM
  3. LOSARTAN. [Concomitant]
     Active Substance: LOSARTAN
  4. VITAMIN A [Concomitant]
     Active Substance: VITAMIN A
  5. CAPECITABINE. [Suspect]
     Active Substance: CAPECITABINE
     Indication: OVARIAN CANCER
     Route: 048
     Dates: start: 20180809
  6. NUERONTIN [Concomitant]
  7. PROAIR HFA [Concomitant]
     Active Substance: ALBUTEROL SULFATE
  8. NEXIUM [Concomitant]
     Active Substance: ESOMEPRAZOLE MAGNESIUM
  9. HYDROCHLOROTHIAZIDE. [Concomitant]
     Active Substance: HYDROCHLOROTHIAZIDE
  10. NORVASC [Concomitant]
     Active Substance: AMLODIPINE BESYLATE
  11. JANUVIA [Concomitant]
     Active Substance: SITAGLIPTIN PHOSPHATE
  12. BENADRYL [Concomitant]
     Active Substance: DIPHENHYDRAMINE HYDROCHLORIDE
  13. ATENELOL [Concomitant]
     Active Substance: ATENOLOL
  14. LIPITOR [Concomitant]
     Active Substance: ATORVASTATIN CALCIUM
  15. VITAMIN C [Concomitant]
     Active Substance: ASCORBIC ACID
  16. METFORMIN [Concomitant]
     Active Substance: METFORMIN HYDROCHLORIDE
  17. VITAMIN B COMPLEX [Concomitant]
     Active Substance: CYANOCOBALAMIN\DEXPANTHENOL\NIACINAMIDE\PYRIDOXINE HYDROCHLORIDE\RIBOFLAVIN 5^-PHOSPHATE SODIUM\THIAMINE HYDROCHLORIDE\VITAMIN B COMPLEX

REACTIONS (3)
  - Therapy cessation [None]
  - Nausea [None]
  - Asthenia [None]

NARRATIVE: CASE EVENT DATE: 20181001
